FAERS Safety Report 22013279 (Version 1)
Quarter: 2023Q1

REPORT INFORMATION
  Report Type: Spontaneous
  Country: US (occurrence: US)
  Receive Date: 20230220
  Receipt Date: 20230220
  Transmission Date: 20230418
  Serious: No
  Sender: FDA-Public Use
  Company Number: US-BRISTOL-MYERS SQUIBB COMPANY-2023-021820

PATIENT
  Age: 66 Year
  Sex: Female

DRUGS (2)
  1. REVLIMID [Suspect]
     Active Substance: LENALIDOMIDE
     Indication: Plasma cell myeloma
     Dosage: FREQUENCY: TAKE 1 CAPSULE BY MOUTH ONCE DAILY FOR 21 DAYS ON, THEN 7 DAYS OFF
     Route: 048
     Dates: start: 20230210
  2. REVLIMID [Suspect]
     Active Substance: LENALIDOMIDE
     Dates: end: 202211

REACTIONS (3)
  - Product supply issue [Unknown]
  - Rash [Unknown]
  - Product storage error [Unknown]
